FAERS Safety Report 21723564 (Version 2)
Quarter: 2023Q1

REPORT INFORMATION
  Report Type: Spontaneous
  Country: US (occurrence: US)
  Receive Date: 20221213
  Receipt Date: 20230317
  Transmission Date: 20230417
  Serious: Yes (Other)
  Sender: FDA-Public Use
  Company Number: US-MYLANLABS-2022M1131954

PATIENT
  Age: 73 Year
  Sex: Female
  Weight: 66.22 kg

DRUGS (6)
  1. EMSAM [Suspect]
     Active Substance: SELEGILINE
     Indication: Depression
     Dosage: 12 MILLIGRAM, QD (1 PATCH ONCE A DAY)
     Route: 062
     Dates: start: 202207, end: 20221006
  2. EMSAM [Suspect]
     Active Substance: SELEGILINE
     Indication: Depression
     Dosage: UNK UNK, QD
     Route: 062
  3. EMSAM [Suspect]
     Active Substance: SELEGILINE
     Indication: Depression
     Dosage: UNK UNK, QD
     Route: 062
  4. VITAMIN D [Concomitant]
     Active Substance: VITAMIN D NOS
     Dosage: UNK
     Route: 065
  5. VITAMIN B [Concomitant]
     Active Substance: VITAMIN B
     Dosage: UNK
     Route: 065
  6. TYLENOL [Concomitant]
     Active Substance: ACETAMINOPHEN
     Dosage: UNK
     Route: 065

REACTIONS (4)
  - Urticaria [Recovering/Resolving]
  - Pharyngeal swelling [Recovering/Resolving]
  - Rash [Recovering/Resolving]
  - Pruritus [Recovering/Resolving]

NARRATIVE: CASE EVENT DATE: 20221006
